FAERS Safety Report 10566962 (Version 1)
Quarter: 2014Q4

REPORT INFORMATION
  Report Type: Spontaneous
  Country: DE (occurrence: DE)
  Receive Date: 20141105
  Receipt Date: 20141105
  Transmission Date: 20150529
  Serious: Yes (Other)
  Sender: FDA-Public Use
  Company Number: DE-TEVA-519787GER

PATIENT
  Age: 49 Year
  Sex: Male
  Weight: 96 kg

DRUGS (7)
  1. PEGINTERFERON ALFA-2A [Suspect]
     Active Substance: PEGINTERFERON ALFA-2A
     Indication: ANTIVIRAL TREATMENT
     Dosage: LATER REDUCED IN WEEK 8
     Route: 065
  2. CICLOSPORIN [Concomitant]
     Active Substance: CYCLOSPORINE
     Dosage: 25 MG/DAY
     Route: 065
  3. TELAPREVIR [Suspect]
     Active Substance: TELAPREVIR
     Indication: ANTIVIRAL TREATMENT
     Dosage: 2250 MILLIGRAM DAILY;
     Route: 065
  4. PEGINTERFERON ALFA-2A [Suspect]
     Active Substance: PEGINTERFERON ALFA-2A
     Dosage: 90 MICROG/DAY
     Route: 065
  5. CICLOSPORIN [Concomitant]
     Active Substance: CYCLOSPORINE
     Indication: IMMUNOSUPPRESSANT DRUG THERAPY
     Dosage: 150 MILLIGRAM DAILY;
     Route: 065
  6. RIBAVIRIN. [Suspect]
     Active Substance: RIBAVIRIN
     Indication: ANTIVIRAL TREATMENT
     Dosage: 1000 MG/DAY, LATER REDUCED IN WEEK 8
     Route: 065
  7. RIBAVIRIN. [Suspect]
     Active Substance: RIBAVIRIN
     Dosage: 800 MG/DAY
     Route: 065

REACTIONS (5)
  - Erythema nodosum [Recovered/Resolved]
  - Hypertension [Unknown]
  - Leukopenia [Recovering/Resolving]
  - Gastrooesophageal reflux disease [Unknown]
  - Anaemia [Recovered/Resolved]
